FAERS Safety Report 7353634-9 (Version None)
Quarter: 2011Q1

REPORT INFORMATION
  Report Type: 
  Country: None (occurrence: None)
  Receive Date: 20110315
  Receipt Date: 20110310
  Transmission Date: 20110831
  Serious: Yes (Death, Hospitalization, Other)
  Sender: FDA-Public Use
  Company Number: US-CELGENEUS-163-21880-11012788

PATIENT
  Sex: Male
  Weight: 73.4 kg

DRUGS (6)
  1. LOVASTATIN [Concomitant]
     Route: 065
  2. AVODART [Concomitant]
     Route: 065
  3. REVLIMID [Suspect]
     Indication: MULTIPLE MYELOMA
     Dosage: 5 MILLIGRAM
     Route: 048
     Dates: start: 20110108
  4. REVLIMID [Suspect]
     Dosage: 10 MILLIGRAM
     Route: 048
     Dates: start: 20100101
  5. NADOLOL [Concomitant]
     Route: 065
  6. HYTRIN [Concomitant]
     Route: 065

REACTIONS (7)
  - BLOOD POTASSIUM INCREASED [None]
  - URINARY RETENTION [None]
  - DRY MOUTH [None]
  - DEATH [None]
  - FAECALOMA [None]
  - DECREASED APPETITE [None]
  - FULL BLOOD COUNT DECREASED [None]
